FAERS Safety Report 8265637-0 (Version None)
Quarter: 2012Q2

REPORT INFORMATION
  Report Type: 
  Country: None (occurrence: None)
  Receive Date: 20120406
  Receipt Date: 20120323
  Transmission Date: 20120825
  Serious: Yes (Other)
  Sender: FDA-Public Use
  Company Number: CHPA2012US005769

PATIENT
  Sex: Female

DRUGS (4)
  1. EXCEDRIN EXTRA STRENGTH TABLETS [Suspect]
     Indication: PAIN
     Dosage: 1-2 DF, PRN
     Route: 048
     Dates: start: 19620101
  2. EXCEDRIN PM CAPLETS [Concomitant]
     Indication: INSOMNIA
     Dosage: 1 DF, PRN
     Route: 048
     Dates: start: 20100101
  3. VITAMINS NOS [Concomitant]
     Dosage: UNK
     Route: 048
  4. ALOE VERA [Concomitant]
     Dosage: UNK
     Route: 048
     Dates: start: 20120301

REACTIONS (5)
  - ARTHRITIS [None]
  - SPINAL COLUMN STENOSIS [None]
  - OFF LABEL USE [None]
  - UNDERDOSE [None]
  - EXPIRED DRUG ADMINISTERED [None]
